FAERS Safety Report 6843366-5 (Version None)
Quarter: 2010Q3

REPORT INFORMATION
  Report Type: 
  Country: None (occurrence: None)
  Receive Date: 20100715
  Receipt Date: 20100630
  Transmission Date: 20110219
  Serious: No
  Sender: FDA-Public Use
  Company Number: US-BAYER-201026812NA

PATIENT
  Age: 26 Year
  Sex: Female
  Weight: 73 kg

DRUGS (2)
  1. ULTRAVIST 370 [Suspect]
     Indication: COMPUTERISED TOMOGRAM ABDOMEN
     Dosage: TOTAL DAILY DOSE: 100 ML  UNIT DOSE: 100 ML
     Route: 042
     Dates: start: 20100630, end: 20100630
  2. UNSPECIFIED ORAL CONTRAST [Concomitant]
     Route: 048
     Dates: start: 20100630, end: 20100630

REACTIONS (1)
  - WHEEZING [None]
